FAERS Safety Report 6014006-2 (Version None)
Quarter: 2008Q4

REPORT INFORMATION
  Report Type: 
  Country: None (occurrence: None)
  Receive Date: 20081219
  Receipt Date: 20080411
  Transmission Date: 20090506
  Serious: No
  Sender: FDA-Public Use
  Company Number: A0635971A

PATIENT
  Age: 69 Year
  Sex: Male

DRUGS (19)
  1. AVODART [Suspect]
     Indication: DRUG USE FOR UNKNOWN INDICATION
     Dosage: .5MG PER DAY
     Route: 048
  2. FLOMAX [Concomitant]
  3. ALLOPURINOL [Concomitant]
  4. MULTI-VITAMIN [Concomitant]
  5. TYLENOL (CAPLET) [Concomitant]
  6. ASPIRIN [Concomitant]
  7. ENEMA [Concomitant]
  8. FOLIC ACID [Concomitant]
  9. FUROSEMIDE [Concomitant]
  10. HALDOL [Concomitant]
  11. LIPITOR [Concomitant]
  12. NAMENDA [Concomitant]
  13. NITROGLYCERIN [Concomitant]
  14. RAZADYNE [Concomitant]
  15. SELENIUM [Concomitant]
  16. SENNA [Concomitant]
  17. SERTRALINE [Concomitant]
  18. TOPROL-XL [Concomitant]
  19. ZYPREXA [Concomitant]

REACTIONS (1)
  - DRUG ADMINISTRATION ERROR [None]
